FAERS Safety Report 23081074 (Version 2)
Quarter: 2023Q4

REPORT INFORMATION
  Report Type: Spontaneous
  Country: BE (occurrence: BE)
  Receive Date: 20231018
  Receipt Date: 20231019
  Transmission Date: 20240110
  Serious: Yes (Other)
  Sender: FDA-Public Use
  Company Number: BE-009507513-2310BEL007535

PATIENT
  Age: 51 Year
  Sex: Male

DRUGS (1)
  1. TEMOZOLOMIDE [Suspect]
     Active Substance: TEMOZOLOMIDE
     Indication: Glioblastoma
     Dosage: 4 CURES OF MAINTENANCE

REACTIONS (3)
  - Recurrent cancer [Unknown]
  - Glioblastoma [Unknown]
  - Malignant neoplasm progression [Unknown]
